FAERS Safety Report 25334457 (Version 1)
Quarter: 2025Q2

REPORT INFORMATION
  Report Type: Spontaneous
  Country: US (occurrence: US)
  Receive Date: 20250520
  Receipt Date: 20250520
  Transmission Date: 20250717
  Serious: No
  Sender: AZURITY PHARMACEUTICALS
  Company Number: US-AZURITY PHARMACEUTICALS, INC.-AZR202504-001029

PATIENT
  Age: 60 Year
  Sex: Male

DRUGS (1)
  1. TESTOSTERONE CYPIONATE [Suspect]
     Active Substance: TESTOSTERONE CYPIONATE
     Indication: Blood testosterone decreased
     Dosage: UNK UNK, WEEKLY
     Route: 065

REACTIONS (4)
  - Limb mass [Recovered/Resolved]
  - Tenderness [Recovered/Resolved]
  - Poor quality product administered [Unknown]
  - Product gel formation [Unknown]

NARRATIVE: CASE EVENT DATE: 20250301
